FAERS Safety Report 6694597-9 (Version None)
Quarter: 2010Q2

REPORT INFORMATION
  Report Type: 
  Country: None (occurrence: None)
  Receive Date: 20100423
  Receipt Date: 20100412
  Transmission Date: 20101027
  Serious: Yes (Other)
  Sender: FDA-Public Use
  Company Number: US-WYE-H14538810

PATIENT

DRUGS (2)
  1. EFFEXOR XR [Suspect]
     Dosage: UNKNOWN
  2. WELLBUTRIN [Suspect]
     Dosage: UNKNOWN

REACTIONS (1)
  - ORGAN TRANSPLANT [None]
